FAERS Safety Report 9985722 (Version 1)
Quarter: 2014Q1

REPORT INFORMATION
  Report Type: Spontaneous
  Country: US (occurrence: US)
  Receive Date: 20140307
  Receipt Date: 20140307
  Transmission Date: 20141002
  Serious: Yes (Other)
  Sender: FDA-Public Use
  Company Number: US-TEVA-466481USA

PATIENT
  Sex: 0

DRUGS (1)
  1. METFORMIN [Suspect]

REACTIONS (1)
  - Coeliac disease [Unknown]
